FAERS Safety Report 7366857-X (Version None)
Quarter: 2011Q1

REPORT INFORMATION
  Report Type: 
  Country: None (occurrence: None)
  Receive Date: 20110322
  Receipt Date: 20110314
  Transmission Date: 20110831
  Serious: Yes (Other)
  Sender: FDA-Public Use
  Company Number: A0864093A

PATIENT
  Sex: Female

DRUGS (5)
  1. CARBIDOPA AND LEVODOPA [Concomitant]
  2. ADVAIR DISKUS 100/50 [Suspect]
     Indication: ASTHMA
     Route: 065
  3. REMICADE [Concomitant]
  4. REQUIP [Suspect]
     Indication: RESTLESS LEGS SYNDROME
     Dosage: .25MG UNKNOWN
     Route: 065
     Dates: start: 20091214
  5. METHOTREXATE [Suspect]

REACTIONS (9)
  - PARKINSON'S DISEASE [None]
  - HIP SURGERY [None]
  - BLOOD IRON DECREASED [None]
  - FALL [None]
  - IMPAIRED DRIVING ABILITY [None]
  - LOWER LIMB FRACTURE [None]
  - LIMB OPERATION [None]
  - DYSKINESIA [None]
  - HAEMOGLOBIN DECREASED [None]
